FAERS Safety Report 7481356-2 (Version None)
Quarter: 2011Q2

REPORT INFORMATION
  Report Type: 
  Country: None (occurrence: None)
  Receive Date: 20110516
  Receipt Date: 20110509
  Transmission Date: 20111010
  Serious: Yes (Hospitalization, Other)
  Sender: FDA-Public Use
  Company Number: MX-SANOFI-AVENTIS-2011SA028373

PATIENT
  Age: 69 Year
  Sex: Female
  Weight: 80 kg

DRUGS (4)
  1. METFORMIN HCL [Concomitant]
     Indication: TYPE 2 DIABETES MELLITUS
     Route: 058
     Dates: start: 20010101, end: 20110427
  2. LANTUS [Suspect]
     Indication: TYPE 2 DIABETES MELLITUS
     Route: 058
     Dates: start: 20010101, end: 20110427
  3. OPTIPEN [Suspect]
  4. LANTUS [Suspect]
     Dosage: 40 IU/DAY (20 IU IN THE MORNING AND 20 IU AT NIGHT)
     Route: 058
     Dates: start: 20110428

REACTIONS (3)
  - HYPERGLYCAEMIA [None]
  - SPINAL COMPRESSION FRACTURE [None]
  - BACK PAIN [None]
